FAERS Safety Report 17726943 (Version 2)
Quarter: 2020Q2

REPORT INFORMATION
  Report Type: Report from Study
  Country: None (occurrence: US)
  Receive Date: 20200430
  Receipt Date: 20200622
  Transmission Date: 20200714
  Serious: Yes (Death, Hospitalization)
  Sender: FDA-Public Use
  Company Number: US-ABBVIE-20K-163-3314877-00

PATIENT
  Age: 66 Year
  Sex: Female

DRUGS (7)
  1. VENCLEXTA [Suspect]
     Active Substance: VENETOCLAX
     Indication: FOLLICLE CENTRE LYMPHOMA, FOLLICULAR GRADE I, II, III
     Dosage: TAKE 2 TABLET(S) BY MOUTH DAILY FOR 7 DAYS
     Route: 048
     Dates: start: 20200312, end: 2020
  2. VENCLEXTA [Suspect]
     Active Substance: VENETOCLAX
     Indication: HYPERCALCAEMIA
  3. VENCLEXTA [Suspect]
     Active Substance: VENETOCLAX
     Indication: PANCYTOPENIA
  4. VENCLEXTA [Suspect]
     Active Substance: VENETOCLAX
     Indication: AGRANULOCYTOSIS
     Route: 048
     Dates: start: 2020, end: 2020
  5. VENCLEXTA [Suspect]
     Active Substance: VENETOCLAX
     Indication: VITAMIN B COMPLEX DEFICIENCY
  6. VENCLEXTA [Suspect]
     Active Substance: VENETOCLAX
     Indication: AGRANULOCYTOSIS
  7. VENCLEXTA [Suspect]
     Active Substance: VENETOCLAX
     Indication: NON-HODGKIN^S LYMPHOMA

REACTIONS (3)
  - Death [Fatal]
  - Off label use [Unknown]
  - Malaise [Unknown]

NARRATIVE: CASE EVENT DATE: 20200312
